FAERS Safety Report 4629207-5 (Version None)
Quarter: 2005Q2

REPORT INFORMATION
  Report Type: 
  Country: None (occurrence: None)
  Receive Date: 20050405
  Receipt Date: 20050321
  Transmission Date: 20051028
  Serious: Yes (Other)
  Sender: FDA-Public Use
  Company Number: DSA_26154_2005

PATIENT
  Sex: Female

DRUGS (7)
  1. ATIVAN [Suspect]
     Indication: DEPRESSION
  2. EFFEXOR [Suspect]
     Indication: DEPRESSION
     Dosage: 225 MG Q DAY PO
     Route: 048
     Dates: start: 20020101, end: 20040801
  3. EFFEXOR [Suspect]
     Indication: DEPRESSION
     Dosage: 225 MG Q DAY PO
     Route: 048
     Dates: start: 20040101, end: 20050302
  4. EFFEXOR [Suspect]
     Indication: DEPRESSION
     Dosage: 150 MG Q DAY PO
     Route: 048
     Dates: start: 20050303, end: 20050304
  5. EFFEXOR [Suspect]
     Indication: DEPRESSION
     Dosage: 75 MG Q DAY PO
     Route: 048
     Dates: start: 20050305, end: 20050306
  6. EFFEXOR [Suspect]
     Indication: DEPRESSION
     Dosage: 75 MG QOD PO
     Route: 048
     Dates: start: 20050307
  7. WELLBUTRIN [Suspect]
     Indication: DEPRESSION

REACTIONS (4)
  - CRYING [None]
  - SUICIDAL IDEATION [None]
  - TREATMENT NONCOMPLIANCE [None]
  - VOMITING [None]
